FAERS Safety Report 5654797-3 (Version None)
Quarter: 2008Q1

REPORT INFORMATION
  Report Type: 
  Country: None (occurrence: None)
  Receive Date: 20080307
  Receipt Date: 20070719
  Transmission Date: 20080703
  Serious: No
  Sender: FDA-Public Use
  Company Number: A0665260A

PATIENT
  Age: 70 Year
  Sex: Male

DRUGS (7)
  1. REQUIP [Suspect]
     Indication: RESTLESS LEGS SYNDROME
     Dosage: 2MG PER DAY
     Route: 048
     Dates: start: 20070301
  2. COUMADIN [Concomitant]
  3. DIGOXIN [Concomitant]
  4. LISINOPRIL [Concomitant]
  5. LOPRESSOR [Concomitant]
  6. TESTOSTERONE INJECTION [Concomitant]
  7. HYTRIN [Concomitant]

REACTIONS (1)
  - DRUG INEFFECTIVE [None]
